FAERS Safety Report 9750617 (Version 1)
Quarter: 2013Q4

REPORT INFORMATION
  Report Type: Spontaneous
  Country: US (occurrence: US)
  Receive Date: 20131212
  Receipt Date: 20131212
  Transmission Date: 20140711
  Serious: No
  Sender: FDA-Public Use
  Company Number: US-BIOGENIDEC-2013BI099776

PATIENT
  Age: 48 Year
  Sex: Male

DRUGS (9)
  1. TECFIDERA [Suspect]
     Indication: MULTIPLE SCLEROSIS
     Route: 048
     Dates: start: 20131004
  2. OXYCONTIN [Concomitant]
  3. EFFEXOR [Concomitant]
  4. WELLBUTRIN [Concomitant]
  5. PROVIGIL [Concomitant]
  6. CLONAZEPAM [Concomitant]
  7. RITALIN [Concomitant]
  8. MARIJUANA [Concomitant]
  9. ASPIRIN [Concomitant]

REACTIONS (1)
  - Intentional drug misuse [Unknown]
